FAERS Safety Report 8391338-4 (Version None)
Quarter: 2012Q2

REPORT INFORMATION
  Report Type: 
  Country: None (occurrence: None)
  Receive Date: 20120529
  Receipt Date: 20120522
  Transmission Date: 20120825
  Serious: Yes (Other)
  Sender: FDA-Public Use
  Company Number: US-JNJFOC-20120518375

PATIENT
  Age: 53 Year
  Sex: Female

DRUGS (2)
  1. ANTIBIOTICS [Concomitant]
     Route: 065
  2. NICOTINE POLACRILEX [Suspect]
     Indication: SMOKING CESSATION THERAPY
     Route: 048

REACTIONS (10)
  - CONDITION AGGRAVATED [None]
  - IRRITABLE BOWEL SYNDROME [None]
  - FLATULENCE [None]
  - HICCUPS [None]
  - ABDOMINAL DISTENSION [None]
  - GASTROOESOPHAGEAL REFLUX DISEASE [None]
  - GASTROINTESTINAL DISORDER [None]
  - DIARRHOEA [None]
  - NICOTINE DEPENDENCE [None]
  - DRUG ADMINISTRATION ERROR [None]
